FAERS Safety Report 15048484 (Version 1)
Quarter: 2018Q2

REPORT INFORMATION
  Report Type: Spontaneous
  Country: DE (occurrence: DE)
  Receive Date: 20180622
  Receipt Date: 20180622
  Transmission Date: 20180711
  Serious: Yes (Hospitalization)
  Sender: FDA-Public Use
  Company Number: DE-TEVA-2018-DE-908594

PATIENT
  Age: 71 Year
  Sex: Male

DRUGS (11)
  1. IPRATROPIUMBROMID NASAL 0,03 % [Concomitant]
     Dosage: 20-20-20.NASAL 0,03 %
     Route: 065
  2. XIPAMIDE [Concomitant]
     Active Substance: XIPAMIDE
     Dosage: 1-0-0-0
     Route: 065
  3. EPLERENONE. [Concomitant]
     Active Substance: EPLERENONE
     Dosage: 1-0-0-0
     Route: 065
  4. SIMVASTATIN. [Concomitant]
     Active Substance: SIMVASTATIN
     Dosage: 0-0-1-0
     Route: 065
  5. PANTOPRAZOLE [Concomitant]
     Active Substance: PANTOPRAZOLE
     Dosage: 1-0-1-0
     Route: 065
  6. ACETYLSALICYLSAEURE [Concomitant]
     Active Substance: ASPIRIN
     Dosage: 0-1-0-0
     Route: 065
  7. METOPROLOL. [Suspect]
     Active Substance: METOPROLOL
     Dosage: 1-0-1-0
     Route: 065
  8. KALIUM [Concomitant]
     Active Substance: POTASSIUM CHLORIDE
     Dosage: NEED
     Route: 065
  9. CLOPIDOGREL [Concomitant]
     Active Substance: CLOPIDOGREL BISULFATE
     Dosage: 1-0-0-0
     Route: 065
  10. TIOTROPIUM BROMIDE [Concomitant]
     Active Substance: TIOTROPIUM BROMIDE
     Dosage: 1-0-0-0
     Route: 065
  11. FUROSEMID [Concomitant]
     Active Substance: FUROSEMIDE
     Dosage: 1-1-0-1
     Route: 065

REACTIONS (3)
  - Drug prescribing error [Unknown]
  - Oxygen saturation decreased [Unknown]
  - Dyspnoea [Unknown]
